FAERS Safety Report 7528308-1 (Version None)
Quarter: 2011Q2

REPORT INFORMATION
  Report Type: 
  Country: None (occurrence: None)
  Receive Date: 20110607
  Receipt Date: 20100920
  Transmission Date: 20111010
  Serious: No
  Sender: FDA-Public Use
  Company Number: US-ASTRAZENECA-2010SE44089

PATIENT
  Age: 61 Year
  Sex: Female
  Weight: 52.6 kg

DRUGS (1)
  1. PRILOSEC [Suspect]
     Indication: GASTROOESOPHAGEAL REFLUX DISEASE
     Route: 048
     Dates: start: 20100415

REACTIONS (7)
  - OROPHARYNGEAL PAIN [None]
  - PYREXIA [None]
  - PHARYNGEAL OEDEMA [None]
  - BACK PAIN [None]
  - DECREASED APPETITE [None]
  - WEIGHT DECREASED [None]
  - ABDOMINAL PAIN UPPER [None]
